FAERS Safety Report 7585432-5 (Version None)
Quarter: 2011Q3

REPORT INFORMATION
  Report Type: 
  Country: None (occurrence: None)
  Receive Date: 20110701
  Receipt Date: 20110615
  Transmission Date: 20111222
  Serious: Yes (Other)
  Sender: FDA-Public Use
  Company Number: US-BAYER-201017403NA

PATIENT
  Age: 39 Year
  Sex: Female
  Weight: 90.909 kg

DRUGS (3)
  1. OXYCODONE HYDROCHLORIDE [Concomitant]
     Indication: ARTHROPATHY
     Dates: start: 20080501
  2. YASMIN [Suspect]
     Indication: CONTRACEPTION
     Dosage: UNK UNK, UNK
     Route: 048
     Dates: start: 20050101, end: 20080101
  3. RANITIDINE [Concomitant]

REACTIONS (3)
  - THROMBOPHLEBITIS SUPERFICIAL [None]
  - DEEP VEIN THROMBOSIS [None]
  - PAIN IN EXTREMITY [None]
